FAERS Safety Report 10676658 (Version 4)
Quarter: 2015Q1

REPORT INFORMATION
  Report Type: Spontaneous
  Country: US (occurrence: US)
  Receive Date: 20141226
  Receipt Date: 20150311
  Transmission Date: 20150720
  Serious: Yes (Other)
  Sender: FDA-Public Use
  Company Number: US-BAYER-2014-189100

PATIENT
  Age: 35 Year
  Sex: Female
  Weight: 58.96 kg

DRUGS (1)
  1. MIRENA [Suspect]
     Active Substance: LEVONORGESTREL
     Indication: CONTRACEPTION
     Dosage: 20 MCG/24HR, CONT
     Route: 015
     Dates: start: 20141202, end: 20141212

REACTIONS (6)
  - Abdominal pain [Recovered/Resolved]
  - Uterine perforation [Recovered/Resolved]
  - Pain [Recovered/Resolved]
  - Device issue [Recovered/Resolved]
  - Uterine rupture [None]
  - Complication of device insertion [None]

NARRATIVE: CASE EVENT DATE: 20141209
